FAERS Safety Report 11758444 (Version 2)
Quarter: 2015Q4

REPORT INFORMATION
  Report Type: Spontaneous
  Country: US (occurrence: US)
  Receive Date: 20151120
  Receipt Date: 20151207
  Transmission Date: 20160304
  Serious: Yes (Other)
  Sender: FDA-Public Use
  Company Number: US-ROCHE-1664085

PATIENT
  Age: 45 Year
  Sex: Female
  Weight: 87.17 kg

DRUGS (1)
  1. XOLAIR [Suspect]
     Active Substance: OMALIZUMAB
     Indication: ASTHMA
     Route: 058
     Dates: start: 20140401, end: 20151118

REACTIONS (1)
  - Fibrocystic breast disease [Unknown]

NARRATIVE: CASE EVENT DATE: 20151101
